FAERS Safety Report 8381504-6 (Version None)
Quarter: 2012Q2

REPORT INFORMATION
  Report Type: 
  Country: None (occurrence: None)
  Receive Date: 20120523
  Receipt Date: 20120517
  Transmission Date: 20120825
  Serious: Yes (Other)
  Sender: FDA-Public Use
  Company Number: US-PFIZER INC-2012120819

PATIENT
  Sex: Female

DRUGS (3)
  1. ZOLOFT [Suspect]
     Dosage: UNK
  2. ZOLOFT [Suspect]
     Dosage: 100 MG, UNK
  3. ZOLOFT [Suspect]
     Indication: PANIC ATTACK
     Dosage: 50 MG, UNK
     Dates: start: 20100101

REACTIONS (10)
  - VERTIGO [None]
  - NAUSEA [None]
  - SEXUAL DYSFUNCTION [None]
  - BALANCE DISORDER [None]
  - DIZZINESS [None]
  - CONFUSIONAL STATE [None]
  - PARAESTHESIA [None]
  - WEIGHT INCREASED [None]
  - FATIGUE [None]
  - DISTURBANCE IN ATTENTION [None]
